FAERS Safety Report 7715471-2 (Version None)
Quarter: 2011Q3

REPORT INFORMATION
  Report Type: 
  Country: None (occurrence: None)
  Receive Date: 20110810
  Receipt Date: 20110712
  Transmission Date: 20111222
  Serious: Yes (Hospitalization)
  Sender: FDA-Public Use
  Company Number: 1000017811

PATIENT
  Age: 26 Year
  Sex: Female

DRUGS (5)
  1. SAVELLA [Suspect]
     Indication: FIBROMYALGIA
     Dosage: SEE IMAGE
     Route: 048
     Dates: start: 20101103, end: 20101103
  2. SAVELLA [Suspect]
     Indication: FIBROMYALGIA
     Dosage: SEE IMAGE
     Route: 048
     Dates: start: 20101104, end: 20101105
  3. SAVELLA [Suspect]
     Indication: FIBROMYALGIA
     Dosage: SEE IMAGE
     Route: 048
     Dates: start: 20101106, end: 20101109
  4. SAVELLA [Suspect]
     Indication: FIBROMYALGIA
     Dosage: SEE IMAGE
     Route: 048
     Dates: start: 20101110, end: 20101201
  5. BACLOFEN [Suspect]
     Dosage: 30 MG(10 MG, 3 IN 1 D), ORAL
     Route: 048

REACTIONS (2)
  - MULTIPLE DRUG OVERDOSE INTENTIONAL [None]
  - SUICIDE ATTEMPT [None]
